FAERS Safety Report 18591144 (Version 1)
Quarter: 2020Q4

REPORT INFORMATION
  Report Type: Spontaneous
  Country: CO (occurrence: CO)
  Receive Date: 20201208
  Receipt Date: 20201208
  Transmission Date: 20210114
  Serious: Yes (Other)
  Sender: FDA-Public Use
  Company Number: CO-PFIZER INC-2020477086

PATIENT
  Age: 54 Year
  Sex: Male

DRUGS (2)
  1. XALKORI [Suspect]
     Active Substance: CRIZOTINIB
     Dosage: 250 MG, 2X/DAY, [HE TOOK TWO DAILY]
     Dates: start: 20201111, end: 20201113
  2. XALKORI [Suspect]
     Active Substance: CRIZOTINIB
     Dosage: 250 MG, DAILY
     Dates: start: 20201114, end: 2020

REACTIONS (5)
  - Laryngeal disorder [Unknown]
  - Vomiting [Recovered/Resolved]
  - Throat irritation [Unknown]
  - Visual impairment [Unknown]
  - Eructation [Unknown]

NARRATIVE: CASE EVENT DATE: 2020
